FAERS Safety Report 19587101 (Version 1)
Quarter: 2021Q3

REPORT INFORMATION
  Report Type: Spontaneous
  Country: US (occurrence: US)
  Receive Date: 20210720
  Receipt Date: 20210720
  Transmission Date: 20211014
  Serious: No
  Sender: FDA-Public Use
  Company Number: None

PATIENT
  Age: 41 Year
  Weight: 77 kg

DRUGS (21)
  1. CYCLOBENZAPRINE. [Concomitant]
     Active Substance: CYCLOBENZAPRINE
  2. TYLENOL [Concomitant]
     Active Substance: ACETAMINOPHEN
  3. CALCIUM +D [Concomitant]
     Active Substance: CALCIUM\VITAMIN D
  4. CAPECITABINE. [Concomitant]
     Active Substance: CAPECITABINE
  5. IBUPROFEN. [Concomitant]
     Active Substance: IBUPROFEN
  6. ONDANSETRON [Concomitant]
     Active Substance: ONDANSETRON
  7. DOCUSATE SODIUM. [Concomitant]
     Active Substance: DOCUSATE SODIUM
  8. LIDOCAINE? PRILOCAINE [Concomitant]
  9. POTASSIUM CHLORIDE. [Concomitant]
     Active Substance: POTASSIUM CHLORIDE
  10. CLARITIN [Concomitant]
     Active Substance: LORATADINE
  11. VITAMIN C [Concomitant]
     Active Substance: ASCORBIC ACID
  12. LOMOTIL [Concomitant]
     Active Substance: ATROPINE SULFATE\DIPHENOXYLATE HYDROCHLORIDE
  13. PROTONIX [Concomitant]
     Active Substance: PANTOPRAZOLE SODIUM
  14. TUKYSA [Concomitant]
     Active Substance: TUCATINIB
  15. FEMARA [Concomitant]
     Active Substance: LETROZOLE
  16. FLUTICASONE. [Concomitant]
     Active Substance: FLUTICASONE
  17. VITAMIN B6 [Concomitant]
     Active Substance: PYRIDOXINE HYDROCHLORIDE
  18. LORAZEPAM. [Concomitant]
     Active Substance: LORAZEPAM
  19. CAPECITABINE. [Suspect]
     Active Substance: CAPECITABINE
     Indication: BREAST CANCER
     Dosage: ?          OTHER FREQUENCY:BID 14/21 DAYS;?
     Route: 048
     Dates: start: 20210212, end: 20210720
  20. SENOKOT [Concomitant]
     Active Substance: SENNOSIDES
  21. ZOFRAN [Concomitant]
     Active Substance: ONDANSETRON HYDROCHLORIDE

REACTIONS (2)
  - Metastases to meninges [None]
  - Disease progression [None]

NARRATIVE: CASE EVENT DATE: 20210720
